FAERS Safety Report 8564939-8 (Version None)
Quarter: 2012Q3

REPORT INFORMATION
  Report Type: 
  Country: None (occurrence: None)
  Receive Date: 20120803
  Receipt Date: 20120725
  Transmission Date: 20120928
  Serious: Yes (Hospitalization)
  Sender: FDA-Public Use
  Company Number: BR-BRISTOL-MYERS SQUIBB COMPANY-16717928

PATIENT
  Age: 78 Year
  Sex: Male
  Weight: 72 kg

DRUGS (2)
  1. SPRYCEL [Suspect]
     Indication: LEUKAEMIA
     Dosage: 3TABS50MG/D,STARTD MORE THAN 6 MONTHS AGO,INTERRUPTED FOR ABOUT 60 DAYS,RESD WITH 2TABS,1TAB;30D
     Route: 048
     Dates: start: 20110101
  2. SERTRALINE HYDROCHLORIDE [Concomitant]
     Indication: NERVOUSNESS

REACTIONS (10)
  - CARDIAC FAILURE [None]
  - LUNG DISORDER [None]
  - HEPATOMEGALY [None]
  - PLATELET COUNT DECREASED [None]
  - DEPRESSION [None]
  - DIARRHOEA [None]
  - GASTROINTESTINAL INFECTION [None]
  - SPLENOMEGALY [None]
  - OEDEMA PERIPHERAL [None]
  - IMMUNODEFICIENCY [None]
